FAERS Safety Report 9723586 (Version 2)
Quarter: 2014Q1

REPORT INFORMATION
  Report Type: Spontaneous
  Country: US (occurrence: US)
  Receive Date: 20131202
  Receipt Date: 20140206
  Transmission Date: 20141002
  Serious: Yes (Death)
  Sender: FDA-Public Use
  Company Number: US-PFIZER INC-2013340211

PATIENT
  Age: 58 Year
  Sex: Male

DRUGS (9)
  1. INLYTA [Suspect]
     Indication: RENAL CANCER
     Dosage: 2 MG, 2X/DAY
     Route: 048
     Dates: start: 20121228
  2. INLYTA [Suspect]
     Dosage: 2 MG, 2X/DAY
     Route: 048
     Dates: start: 20130223, end: 201311
  3. LOVENOX [Concomitant]
     Dosage: UNK
  4. AMLODIPINE [Concomitant]
     Dosage: UNK
  5. DEXAMETHASONE [Concomitant]
     Dosage: UNK
  6. CHERATUSSIN [Concomitant]
     Dosage: UNK
  7. ALBUTEROL [Concomitant]
     Dosage: UNK
  8. NOVOLOG [Concomitant]
  9. LANTUS [Concomitant]

REACTIONS (1)
  - Death [Fatal]
